FAERS Safety Report 7730794-9 (Version None)
Quarter: 2011Q3

REPORT INFORMATION
  Report Type: 
  Country: None (occurrence: None)
  Receive Date: 20110906
  Receipt Date: 20110826
  Transmission Date: 20111222
  Serious: Yes (Hospitalization)
  Sender: FDA-Public Use
  Company Number: BE-JNJFOC-20110812963

PATIENT
  Age: 77 Year
  Sex: Female

DRUGS (2)
  1. REMICADE [Suspect]
     Route: 042
     Dates: start: 20110711
  2. REMICADE [Suspect]
     Indication: CORNEAL DISORDER
     Route: 042
     Dates: start: 20110725, end: 20110725

REACTIONS (3)
  - SEPSIS [None]
  - LOBAR PNEUMONIA [None]
  - CHOLECYSTITIS [None]
